FAERS Safety Report 14663945 (Version 1)
Quarter: 2018Q1

REPORT INFORMATION
  Report Type: Spontaneous
  Country: US (occurrence: US)
  Receive Date: 20180318
  Receipt Date: 20180318
  Transmission Date: 20180509
  Serious: Yes (Other)
  Sender: FDA-Public Use
  Company Number: None

PATIENT
  Age: 42 Year
  Sex: Female
  Weight: 49.5 kg

DRUGS (3)
  1. LUPRON [Suspect]
     Active Substance: LEUPROLIDE ACETATE
     Indication: ENDOMETRIOSIS
     Route: 058
     Dates: start: 20130503, end: 20130503
  2. IRON [Concomitant]
     Active Substance: IRON
  3. LUPRON [Suspect]
     Active Substance: LEUPROLIDE ACETATE
     Indication: UTERINE LEIOMYOMA
     Route: 058
     Dates: start: 20130503, end: 20130503

REACTIONS (11)
  - Cardiac murmur [None]
  - Hot flush [None]
  - Night sweats [None]
  - Suicidal ideation [None]
  - Dizziness [None]
  - Bone pain [None]
  - Memory impairment [None]
  - Anger [None]
  - Insomnia [None]
  - Arthralgia [None]
  - Pruritus [None]

NARRATIVE: CASE EVENT DATE: 20130503
